FAERS Safety Report 5452176-5 (Version None)
Quarter: 2007Q3

REPORT INFORMATION
  Report Type: 
  Country: None (occurrence: None)
  Receive Date: 20070912
  Receipt Date: 20070830
  Transmission Date: 20080115
  Serious: Yes (Death)
  Sender: FDA-Public Use
  Company Number: 2005042922

PATIENT
  Age: 4 Month
  Sex: Male
  Weight: 8.2 kg

DRUGS (2)
  1. BENADRYL ALLERY/SINUS (DIPHENHYDRAMINE, PSEUDOEPHEDRINE) [Suspect]
     Indication: COUGH
     Dosage: UNSPECIFIED, ORAL
     Route: 048
     Dates: start: 20050209, end: 20050209
  2. DIMETAPP [Suspect]
     Dosage: UNSPECIFIED, ORAL
     Route: 048
     Dates: start: 20050209, end: 20050209

REACTIONS (5)
  - CARDIAC ARREST [None]
  - DRUG TOXICITY [None]
  - OVERDOSE [None]
  - RESPIRATORY ARREST [None]
  - UNRESPONSIVE TO STIMULI [None]
